FAERS Safety Report 9539482 (Version 1)
Quarter: 2013Q2

REPORT INFORMATION
  Report Type: Spontaneous
  Country: US (occurrence: None)
  Receive Date: 20130521
  Receipt Date: 20130521
  Transmission Date: 20140414
  Serious: No
  Sender: FDA-Public Use
  Company Number: 1000043730

PATIENT
  Age: 70 Year
  Sex: Female

DRUGS (3)
  1. TUDORZA PRESSAIR (ACLIDINIUM BROMIDE) (400 MICROGRAM, POWDER) [Suspect]
     Indication: CHRONIC OBSTRUCTIVE PULMONARY DISEASE
     Dosage: 400 MCG, 2 IN 1 D, RESPIRATORY (INHALATION)
     Dates: start: 201212
  2. SYMBICORT (BUDESONIDE W/ FORMOTEROL FUMARATE) (BUDESONIDE W/ FORMOTEROL FUMARATE) [Concomitant]
  3. PROVENTIL HFA (ALBUTEROL) (ALBUTEROL) [Concomitant]

REACTIONS (2)
  - Cough [None]
  - Rhinorrhoea [None]
